FAERS Safety Report 8188512-9 (Version None)
Quarter: 2012Q1

REPORT INFORMATION
  Report Type: 
  Country: None (occurrence: None)
  Receive Date: 20120306
  Receipt Date: 20120301
  Transmission Date: 20120608
  Serious: Yes (Other)
  Sender: FDA-Public Use
  Company Number: PHFR2011GB02893

PATIENT
  Sex: Male

DRUGS (8)
  1. FOLIC ACID [Concomitant]
     Dosage: 5 MG, UNK
     Route: 048
  2. AMISULPRIDE SANDOZ [Suspect]
     Dosage: 600MG
  3. PROPRANOLOL [Concomitant]
     Dosage: 20 MG, UNK
     Route: 048
  4. AMITRIPTYLINE HCL [Concomitant]
     Dosage: 25 MG, UNK
     Route: 048
  5. HYOSCINE [Concomitant]
     Route: 061
  6. CLOZARIL [Suspect]
     Dosage: 400 MG/DAY
     Route: 048
     Dates: start: 20110720
  7. CLOZARIL [Suspect]
     Indication: SCHIZOPHRENIA
     Dosage: 400 MG/DAY
     Route: 048
     Dates: start: 20070918
  8. LANSOPRAZOLE [Concomitant]
     Dosage: 30 MG, UNK
     Route: 048

REACTIONS (3)
  - SICKLE CELL TRAIT [None]
  - PLATELET COUNT DECREASED [None]
  - HAEMOGLOBIN DECREASED [None]
